FAERS Safety Report 17198486 (Version 1)
Quarter: 2019Q4

REPORT INFORMATION
  Report Type: Spontaneous
  Country: AU (occurrence: AU)
  Receive Date: 20191225
  Receipt Date: 20191225
  Transmission Date: 20200122
  Serious: Yes (Other)
  Sender: FDA-Public Use
  Company Number: AU-ROCHE-2073297

PATIENT
  Age: 34 Year
  Sex: Male

DRUGS (2)
  1. RITUXIMAB. [Suspect]
     Active Substance: RITUXIMAB
     Indication: MULTIPLE SCLEROSIS
     Dosage: 1G X 2
     Route: 065
     Dates: start: 201603
  2. RITUXIMAB. [Suspect]
     Active Substance: RITUXIMAB
     Dosage: 500MG X2 , ONGOING
     Route: 065

REACTIONS (3)
  - Off label use [Unknown]
  - Intentional product use issue [Unknown]
  - Osteonecrosis [Unknown]
